FAERS Safety Report 4800090-8 (Version None)
Quarter: 2005Q4

REPORT INFORMATION
  Report Type: 
  Country: None (occurrence: None)
  Receive Date: 20051012
  Receipt Date: 20051012
  Transmission Date: 20060501
  Serious: Yes (Hospitalization)
  Sender: FDA-Public Use
  Company Number: None

PATIENT
  Sex: Male
  Weight: 70.3075 kg

DRUGS (6)
  1. DIGOXIN [Suspect]
     Indication: CARDIAC DISORDER
     Dosage: 0.25 MG PO QD [PRIOR TO ADMISSION]
     Route: 048
  2. COREG [Concomitant]
  3. LESCOL XL [Concomitant]
  4. COUMADIN [Concomitant]
  5. AMARYL [Concomitant]
  6. AMIODARONE HCL [Concomitant]

REACTIONS (5)
  - ASTHENIA [None]
  - CARDIOACTIVE DRUG LEVEL INCREASED [None]
  - DECREASED APPETITE [None]
  - DIZZINESS [None]
  - GAIT DISTURBANCE [None]
